FAERS Safety Report 7078596-3 (Version None)
Quarter: 2010Q4

REPORT INFORMATION
  Report Type: 
  Country: None (occurrence: None)
  Receive Date: 20101101
  Receipt Date: 20101101
  Transmission Date: 20110411
  Serious: Yes (Life-Threatening)
  Sender: FDA-Public Use
  Company Number: None

PATIENT
  Age: 64 Year
  Sex: Female
  Weight: 62.5964 kg

DRUGS (1)
  1. PREDNISONE [Suspect]
     Indication: MYALGIA
     Dosage: 200 ONCE A DAY PO
     Route: 048
     Dates: start: 20100929, end: 20101101

REACTIONS (2)
  - CARDIAC DISORDER [None]
  - MALAISE [None]
